FAERS Safety Report 8032222-5 (Version None)
Quarter: 2012Q1

REPORT INFORMATION
  Report Type: 
  Country: None (occurrence: None)
  Receive Date: 20120110
  Receipt Date: 20111230
  Transmission Date: 20120608
  Serious: No
  Sender: FDA-Public Use
  Company Number: US-BIOGENIDEC-2011BI022133

PATIENT
  Sex: Female

DRUGS (1)
  1. TYSABRI [Suspect]
     Indication: MULTIPLE SCLEROSIS
     Route: 042
     Dates: start: 20101116, end: 20110706

REACTIONS (9)
  - ASTHENIA [None]
  - MUSCLE SPASMS [None]
  - SINUSITIS [None]
  - HEADACHE [None]
  - HYPOAESTHESIA [None]
  - CONFUSIONAL STATE [None]
  - FATIGUE [None]
  - MULTIPLE SCLEROSIS [None]
  - MIGRAINE [None]
